FAERS Safety Report 5967702-7 (Version None)
Quarter: 2008Q4

REPORT INFORMATION
  Report Type: 
  Country: None (occurrence: None)
  Receive Date: 20081126
  Receipt Date: 20081117
  Transmission Date: 20090506
  Serious: Yes (Life-Threatening, Hospitalization, Disabling, Other)
  Sender: FDA-Public Use
  Company Number: GB-RANBAXY-2008RR-18371

PATIENT
  Age: 21 Year
  Sex: Male

DRUGS (2)
  1. ISOTRETINOIN [Suspect]
     Indication: ACNE
     Dosage: 20 MG, QD
     Route: 048
     Dates: start: 20080102, end: 20080508
  2. ISOTRETINOIN [Suspect]
     Dosage: UNK
     Route: 048

REACTIONS (1)
  - TYPE 1 DIABETES MELLITUS [None]
